FAERS Safety Report 24079016 (Version 1)
Quarter: 2024Q3

REPORT INFORMATION
  Report Type: Spontaneous
  Country: US (occurrence: US)
  Receive Date: 20240711
  Receipt Date: 20240711
  Transmission Date: 20241016
  Serious: No
  Sender: RISING PHARMACEUTICALS
  Company Number: US-RISINGPHARMA-US-2024RISSPO00235

PATIENT
  Sex: Female

DRUGS (4)
  1. DROPERIDOL [Suspect]
     Active Substance: DROPERIDOL
     Indication: Pain
     Route: 042
     Dates: start: 20240616
  2. BENADRYL [Concomitant]
     Active Substance: DIPHENHYDRAMINE HYDROCHLORIDE
     Indication: Pain
     Route: 065
  3. ATIVAN [Concomitant]
     Active Substance: LORAZEPAM
     Indication: Pain
     Route: 065
  4. PROCHLORPERAZINE EDISYLATE [Concomitant]
     Active Substance: PROCHLORPERAZINE EDISYLATE
     Indication: Product used for unknown indication
     Route: 065

REACTIONS (5)
  - Nightmare [Not Recovered/Not Resolved]
  - Feeling abnormal [Not Recovered/Not Resolved]
  - Impaired work ability [Not Recovered/Not Resolved]
  - Akathisia [Not Recovered/Not Resolved]
  - Product use in unapproved indication [Unknown]

NARRATIVE: CASE EVENT DATE: 20240601
